FAERS Safety Report 12375210 (Version 1)
Quarter: 2016Q2

REPORT INFORMATION
  Report Type: Spontaneous
  Country: US (occurrence: US)
  Receive Date: 20160517
  Receipt Date: 20160517
  Transmission Date: 20160815
  Serious: Yes (Other)
  Sender: FDA-Public Use
  Company Number: US-BEH-2016062163

PATIENT
  Age: 51 Year
  Sex: Female
  Weight: 86 kg

DRUGS (14)
  1. VANCOMYCIN [Concomitant]
     Active Substance: VANCOMYCIN
  2. ZOVIRAX [Concomitant]
     Active Substance: ACYCLOVIR
  3. KEFLEX [Concomitant]
     Active Substance: CEPHALEXIN
  4. HIZENTRA [Suspect]
     Active Substance: HUMAN IMMUNOGLOBULIN G
     Indication: IMMUNODEFICIENCY COMMON VARIABLE
     Dates: end: 20160329
  5. DIPHENHYDRAMINE. [Concomitant]
     Active Substance: DIPHENHYDRAMINE
  6. CEFTRIAXONE. [Concomitant]
     Active Substance: CEFTRIAXONE
  7. HIZENTRA [Suspect]
     Active Substance: HUMAN IMMUNOGLOBULIN G
     Route: 058
     Dates: start: 20160223
  8. HIZENTRA [Suspect]
     Active Substance: HUMAN IMMUNOGLOBULIN G
     Route: 058
     Dates: start: 20160223
  9. ACETAMINOPHEN. [Concomitant]
     Active Substance: ACETAMINOPHEN
  10. EPIPEN [Concomitant]
     Active Substance: EPINEPHRINE
  11. HIZENTRA [Suspect]
     Active Substance: HUMAN IMMUNOGLOBULIN G
     Indication: SELECTIVE IGG SUBCLASS DEFICIENCY
     Dosage: STARTED IN JUN-2014; STOP IN JAN-2015; RESTARTED IN JUN-2015
  12. HIZENTRA [Suspect]
     Active Substance: HUMAN IMMUNOGLOBULIN G
     Route: 058
     Dates: start: 20160223
  13. AZITHROMYCIN ANHYDROUS. [Concomitant]
     Active Substance: AZITHROMYCIN ANHYDROUS
  14. LEVAQUIN [Concomitant]
     Active Substance: LEVOFLOXACIN

REACTIONS (4)
  - Pyrexia [Recovered/Resolved]
  - Meningitis aseptic [Unknown]
  - Headache [Recovered/Resolved]
  - Local reaction [Unknown]

NARRATIVE: CASE EVENT DATE: 20160330
